FAERS Safety Report 20465545 (Version 1)
Quarter: 2022Q1

REPORT INFORMATION
  Report Type: Report from Study
  Country: SE (occurrence: SE)
  Receive Date: 20220212
  Receipt Date: 20220212
  Transmission Date: 20220423
  Serious: Yes (Hospitalization, Other)
  Sender: FDA-Public Use
  Company Number: SE-TAKEDA-SE201810982

PATIENT
  Sex: Male

DRUGS (5)
  1. IDURSULFASE [Suspect]
     Active Substance: IDURSULFASE
     Indication: Mucopolysaccharidosis II
     Dosage: 0.5 MILLIGRAM/KILOGRAM, 1/WEEK
     Route: 065
     Dates: start: 20120725
  2. MONTELUKAST [Concomitant]
     Active Substance: MONTELUKAST SODIUM
     Indication: Asthma
  3. FLUTIKASON PROPIONAT [Concomitant]
     Indication: Asthma
  4. DESLORATADINE [Concomitant]
     Active Substance: DESLORATADINE
     Indication: Premedication
  5. MELATONIN [Concomitant]
     Active Substance: MELATONIN
     Indication: Insomnia

REACTIONS (3)
  - Adenoidal hypertrophy [Recovered/Resolved with Sequelae]
  - Tonsillectomy [Unknown]
  - Uvulopalatopharyngoplasty [Recovered/Resolved with Sequelae]

NARRATIVE: CASE EVENT DATE: 20180319
